FAERS Safety Report 15559128 (Version 2)
Quarter: 2018Q4

REPORT INFORMATION
  Report Type: Report from Study
  Country: IL (occurrence: IL)
  Receive Date: 20181029
  Receipt Date: 20181109
  Transmission Date: 20190205
  Serious: Yes (Death)
  Sender: FDA-Public Use
  Company Number: IL-TAKEDA-2018TUS031121

PATIENT
  Sex: Male

DRUGS (1)
  1. BRIGATINIB [Suspect]
     Active Substance: BRIGATINIB
     Indication: NON-SMALL CELL LUNG CANCER
     Dosage: UNK
     Route: 048

REACTIONS (2)
  - Neoplasm progression [Fatal]
  - Off label use [Unknown]

NARRATIVE: CASE EVENT DATE: 20180911
